FAERS Safety Report 5015170-4 (Version None)
Quarter: 2006Q2

REPORT INFORMATION
  Report Type: 
  Country: None (occurrence: None)
  Receive Date: 20060530
  Receipt Date: 20060516
  Transmission Date: 20061013
  Serious: Yes (Life-Threatening)
  Sender: FDA-Public Use
  Company Number: 14102

PATIENT
  Age: 58 Year
  Sex: Male

DRUGS (2)
  1. ANZATAX [Suspect]
     Indication: NON-SMALL CELL LUNG CANCER
     Dosage: 300 MG IV
     Route: 042
     Dates: start: 20060510, end: 20060510
  2. CARBOPLATIN [Concomitant]

REACTIONS (5)
  - ABDOMINAL PAIN UPPER [None]
  - BACK PAIN [None]
  - FLUSHING [None]
  - HYPERHIDROSIS [None]
  - HYPERTENSIVE CRISIS [None]
